FAERS Safety Report 21529384 (Version 3)
Quarter: 2022Q4

REPORT INFORMATION
  Report Type: Spontaneous
  Country: GB (occurrence: GB)
  Receive Date: 20221031
  Receipt Date: 20221207
  Transmission Date: 20230113
  Serious: Yes (Hospitalization, Other)
  Sender: FDA-Public Use
  Company Number: GB-BAXTER-2022BAX021446

PATIENT
  Age: 7 Year
  Sex: Female
  Weight: 21 kg

DRUGS (32)
  1. ZONISAMIDE [Suspect]
     Active Substance: ZONISAMIDE
     Indication: Epilepsy
     Dosage: UNK
     Route: 065
     Dates: start: 20220524
  2. ZONISAMIDE [Suspect]
     Active Substance: ZONISAMIDE
     Dosage: UNK
     Route: 065
     Dates: start: 20220903
  3. ALFENTANIL [Suspect]
     Active Substance: ALFENTANIL
     Indication: Sedative therapy
     Dosage: UNK, FIRST DOSE
     Route: 065
     Dates: start: 20220110, end: 20220110
  4. ALFENTANIL [Suspect]
     Active Substance: ALFENTANIL
     Dosage: UNK, SECOND DOSE
     Route: 065
     Dates: start: 20220207, end: 20220207
  5. ALFENTANIL [Suspect]
     Active Substance: ALFENTANIL
     Dosage: UNK, THIRD DOSE
     Route: 065
     Dates: start: 20220307, end: 20220307
  6. ALFENTANIL [Suspect]
     Active Substance: ALFENTANIL
     Dosage: UNK, SIXTH DOSE
     Route: 065
     Dates: start: 20220926, end: 20220926
  7. ALFENTANIL [Suspect]
     Active Substance: ALFENTANIL
     Dosage: UNK, FOURTH DOSE
     Route: 065
     Dates: start: 20220404, end: 20220404
  8. ALFENTANIL [Suspect]
     Active Substance: ALFENTANIL
     Dosage: UNK, FIFTH DOSE
     Route: 065
     Dates: start: 20220627, end: 20220627
  9. SEVOFLURANE [Suspect]
     Active Substance: SEVOFLURANE
     Indication: Sedative therapy
     Dosage: UNK PERCENT SINGLE FIRST DOSE
     Route: 055
     Dates: start: 20220110, end: 20220110
  10. SEVOFLURANE [Suspect]
     Active Substance: SEVOFLURANE
     Indication: Anaesthesia procedure
     Dosage: 2.6 PERCENT,  SINGLE, THIRD DOSE
     Route: 055
     Dates: start: 20220307, end: 20220307
  11. SEVOFLURANE [Suspect]
     Active Substance: SEVOFLURANE
     Dosage: UNK PERCENT SINGLE, FIFTH DOSE
     Route: 055
     Dates: start: 20220627, end: 20220627
  12. SEVOFLURANE [Suspect]
     Active Substance: SEVOFLURANE
     Dosage: UNK PERCENT SINGLE, SIXTH DOSE
     Route: 055
     Dates: start: 20220926, end: 20220926
  13. SEVOFLURANE [Suspect]
     Active Substance: SEVOFLURANE
     Dosage: UNK PERCENT SINGLE, SECOND DOSE
     Route: 055
     Dates: start: 20220207, end: 20220207
  14. SEVOFLURANE [Suspect]
     Active Substance: SEVOFLURANE
     Dosage: UNK PERCENT SINGLE, FOURTH DOSE
     Route: 055
     Dates: start: 20220404, end: 20220404
  15. CLOBAZAM [Suspect]
     Active Substance: CLOBAZAM
     Indication: Epilepsy
     Dosage: UNK
     Route: 065
     Dates: start: 201910
  16. CLONIDINE [Suspect]
     Active Substance: CLONIDINE
     Indication: Sleep disorder
     Dosage: UNK
     Route: 065
     Dates: start: 20210101
  17. MELATONIN [Suspect]
     Active Substance: MELATONIN
     Indication: Sleep disorder
     Dosage: UNK
     Route: 065
     Dates: start: 202008
  18. MIDAZOLAM [Suspect]
     Active Substance: MIDAZOLAM
     Indication: Sedative therapy
     Dosage: UNK (WITH FIRST DOSE OF STUDY DRUG) DOSE AND FREQUENCY NOT REPORTED
     Route: 065
     Dates: start: 20220110, end: 20220110
  19. MIDAZOLAM [Suspect]
     Active Substance: MIDAZOLAM
     Dosage: UNK (WITH THIRD DOSE OF STUDY DRUG) DOSE AND FREQUENCY NOT REPORTED
     Route: 065
     Dates: start: 20220307, end: 20220307
  20. MIDAZOLAM [Suspect]
     Active Substance: MIDAZOLAM
     Dosage: UNK, (WITH FOURTH DOSE OF STUDY DRUG) DOSE AND FREQUENCY NOT REPORTED
     Route: 065
     Dates: start: 20220404, end: 20220404
  21. MIDAZOLAM [Suspect]
     Active Substance: MIDAZOLAM
     Dosage: UNK (WITH SIXTH DOSE OF STUDY DRUG) DOSE AND FREQUENCY NOT REPORTED
     Route: 065
     Dates: start: 20220926, end: 20220926
  22. MIDAZOLAM [Suspect]
     Active Substance: MIDAZOLAM
     Dosage: UNK, (WITH SECOND DOSE OF STUDY DRUG) DOSE AND FREQUENCY NOT REPORTED
     Route: 065
     Dates: start: 20220207, end: 20220207
  23. MIDAZOLAM [Suspect]
     Active Substance: MIDAZOLAM
     Dosage: UNK (WITH FIFTH DOSE OF STUDY DRUG) DOSE AND FREQUENCY NOT REPORTED
     Route: 065
     Dates: start: 20220627, end: 20220627
  24. NITROUS OXIDE [Suspect]
     Active Substance: NITROUS OXIDE
     Indication: Sedative therapy
     Dosage: UNK
     Route: 065
     Dates: start: 20220110
  25. ACETAMINOPHEN [Suspect]
     Active Substance: ACETAMINOPHEN
     Indication: Constipation
     Dosage: UNK
     Route: 065
     Dates: start: 20220120
  26. ACETAMINOPHEN [Suspect]
     Active Substance: ACETAMINOPHEN
     Indication: Pain
     Dosage: UNK
     Route: 065
  27. PROPOFOL [Suspect]
     Active Substance: PROPOFOL
     Indication: Sedative therapy
     Dosage: UNK, FIRST DOSE
     Route: 065
     Dates: start: 20220110, end: 20220110
  28. PROPOFOL [Suspect]
     Active Substance: PROPOFOL
     Dosage: UNK, SECOND DOSE
     Route: 065
     Dates: start: 20220207, end: 20220207
  29. PROPOFOL [Suspect]
     Active Substance: PROPOFOL
     Dosage: UNK, THIRD DOSE
     Route: 065
     Dates: start: 20220307, end: 20220307
  30. PROPOFOL [Suspect]
     Active Substance: PROPOFOL
     Dosage: UNK, FOURTH DOSE
     Route: 065
     Dates: start: 20220404, end: 20220404
  31. PROPOFOL [Suspect]
     Active Substance: PROPOFOL
     Dosage: UNK, FIFTH DOSE
     Route: 065
     Dates: start: 20220627, end: 20220627
  32. PROPOFOL [Suspect]
     Active Substance: PROPOFOL
     Dosage: UNK, SIXTH DOSE
     Route: 065
     Dates: start: 20220926, end: 20220926

REACTIONS (2)
  - Epilepsy with myoclonic-atonic seizures [Recovered/Resolved]
  - Change in seizure presentation [Recovered/Resolved]

NARRATIVE: CASE EVENT DATE: 20220926
